FAERS Safety Report 6252252-3 (Version None)
Quarter: 2009Q2

REPORT INFORMATION
  Report Type: 
  Country: None (occurrence: None)
  Receive Date: 20090629
  Receipt Date: 20090613
  Transmission Date: 20091009
  Serious: No
  Sender: FDA-Public Use
  Company Number: A03200902725

PATIENT
  Age: 3 Year
  Sex: 0

DRUGS (5)
  1. OFORTA- (FLUDARABINE PHOSPHATE) - UNKNOWN - UNIT DOSE: UNKNOWN [Suspect]
  2. CAMPATH [Suspect]
  3. CYTARABINE [Suspect]
  4. CYCLOSPORINE [Concomitant]
  5. MYCOPHENOLATE MOFETIL [Concomitant]

REACTIONS (6)
  - ACUTE GRAFT VERSUS HOST DISEASE IN SKIN [None]
  - CYTOMEGALOVIRUS INFECTION [None]
  - CYTOMEGALOVIRUS VIRAEMIA [None]
  - DRUG USE FOR UNKNOWN INDICATION [None]
  - HYPOGAMMAGLOBULINAEMIA [None]
  - LYMPHOPENIA [None]
